FAERS Safety Report 10048969 (Version 2)
Quarter: 2014Q1

REPORT INFORMATION
  Report Type: Spontaneous
  Country: FR (occurrence: FR)
  Receive Date: 20140331
  Receipt Date: 20140331
  Transmission Date: 20141002
  Serious: Yes (Other)
  Sender: FDA-Public Use
  Company Number: FR-ABBVIE-14P-056-1206062-00

PATIENT
  Age: 48 Year
  Sex: Female

DRUGS (3)
  1. HUMIRA [Suspect]
     Indication: PRODUCT USED FOR UNKNOWN INDICATION
     Dates: start: 20131205
  2. HUMIRA [Suspect]
  3. HUMIRA [Suspect]
     Dates: end: 20140124

REACTIONS (2)
  - Insomnia [Unknown]
  - Tinnitus [Not Recovered/Not Resolved]
